FAERS Safety Report 6681256-1 (Version None)
Quarter: 2010Q2

REPORT INFORMATION
  Report Type: 
  Country: None (occurrence: None)
  Receive Date: 20100414
  Receipt Date: 20100115
  Transmission Date: 20101027
  Serious: No
  Sender: FDA-Public Use
  Company Number: US-KINGPHARMUSA00001-K201000060

PATIENT
  Sex: Female

DRUGS (1)
  1. SKELAXIN [Suspect]
     Dosage: UNK
     Dates: start: 20091218, end: 20091201

REACTIONS (2)
  - HYPERSENSITIVITY [None]
  - RASH [None]
